FAERS Safety Report 9434841 (Version 3)
Quarter: 2014Q3

REPORT INFORMATION
  Report Type: Spontaneous
  Country: US (occurrence: US)
  Receive Date: 20130801
  Receipt Date: 20140716
  Transmission Date: 20150326
  Serious: Yes (Hospitalization, Other)
  Sender: FDA-Public Use
  Company Number: US-009507513-1307USA017131

PATIENT
  Sex: Female
  Weight: 74.83 kg

DRUGS (3)
  1. ZYRTEC [Concomitant]
     Active Substance: CETIRIZINE HYDROCHLORIDE
     Indication: SINUS HEADACHE
     Dosage: UNK, PRN
     Dates: start: 2003
  2. NUVARING [Suspect]
     Active Substance: ETHINYL ESTRADIOL\ETONOGESTREL
     Indication: CONTRACEPTION
     Dosage: UNK
     Route: 067
     Dates: start: 2005, end: 200605
  3. VITAMINS (UNSPECIFIED) [Concomitant]
     Active Substance: VITAMINS
     Dosage: UNK, QD
     Route: 048
     Dates: start: 2000

REACTIONS (18)
  - Cholestasis [Unknown]
  - Thoracotomy [Unknown]
  - Maternal exposure before pregnancy [Unknown]
  - Fungal infection [Unknown]
  - Oedema peripheral [Unknown]
  - Pulmonary vasculitis [Unknown]
  - Empyema [Unknown]
  - Pulmonary embolism [Unknown]
  - Abortion spontaneous [Unknown]
  - Pulmonary mass [Unknown]
  - Transfusion [Unknown]
  - Anaemia [Unknown]
  - Thrombocytosis [Unknown]
  - Pulmonary necrosis [Unknown]
  - Aspiration pleural cavity [Unknown]
  - Pleurisy [Unknown]
  - Partial lung resection [Unknown]
  - Mammoplasty [Unknown]

NARRATIVE: CASE EVENT DATE: 20060429
